FAERS Safety Report 21795806 (Version 2)
Quarter: 2023Q1

REPORT INFORMATION
  Report Type: Report from Study
  Country: US (occurrence: US)
  Receive Date: 20221229
  Receipt Date: 20230224
  Transmission Date: 20230418
  Serious: Yes (Other)
  Sender: FDA-Public Use
  Company Number: US-ABBVIE-4252268

PATIENT
  Sex: Female
  Weight: 67.131 kg

DRUGS (4)
  1. RINVOQ [Suspect]
     Active Substance: UPADACITINIB
     Indication: Rheumatoid arthritis
     Route: 048
     Dates: start: 2020
  2. LEXAPRO [Concomitant]
     Active Substance: ESCITALOPRAM OXALATE
     Indication: Anxiety
  3. TRAMADOL [Concomitant]
     Active Substance: TRAMADOL
     Indication: Procedural pain
  4. OXYCODONE [Concomitant]
     Active Substance: OXYCODONE
     Indication: Procedural pain

REACTIONS (3)
  - Hypoaesthesia [Recovered/Resolved]
  - Procedural pain [Recovered/Resolved]
  - Arthritis [Unknown]

NARRATIVE: CASE EVENT DATE: 20220101
